FAERS Safety Report 8509315-9 (Version None)
Quarter: 2012Q3

REPORT INFORMATION
  Report Type: 
  Country: None (occurrence: None)
  Receive Date: 20120713
  Receipt Date: 20120704
  Transmission Date: 20120928
  Serious: Yes (Hospitalization)
  Sender: FDA-Public Use
  Company Number: JP-VERTEX PHARMACEUTICALS INC.-AE-2012-010091

PATIENT
  Age: 61 Year
  Sex: Male

DRUGS (7)
  1. TELAVIC (TELAPREVIR) [Suspect]
     Route: 048
     Dates: start: 20120514, end: 20120522
  2. RIBAVIRIN [Concomitant]
     Route: 048
     Dates: start: 20111102, end: 20120528
  3. TELAVIC (TELAPREVIR) [Suspect]
     Indication: HEPATITIS C
     Route: 048
     Dates: start: 20120509, end: 20120511
  4. TELAVIC (TELAPREVIR) [Suspect]
     Route: 048
     Dates: start: 20120523, end: 20120630
  5. MINOPHAGEN [Concomitant]
     Dates: start: 20111102, end: 20120523
  6. PEGINTERFERON ALFA-2B [Concomitant]
     Route: 058
     Dates: start: 20111102, end: 20120627
  7. RIBAVIRIN [Concomitant]
     Route: 048
     Dates: start: 20120529, end: 20120630

REACTIONS (2)
  - HAEMATEMESIS [None]
  - GASTROINTESTINAL HAEMORRHAGE [None]
